FAERS Safety Report 20409088 (Version 1)
Quarter: 2022Q1

REPORT INFORMATION
  Report Type: Spontaneous
  Country: US (occurrence: US)
  Receive Date: 20220201
  Receipt Date: 20220201
  Transmission Date: 20220423
  Serious: No
  Sender: FDA-Public Use
  Company Number: US-GLENMARK PHARMACEUTICALS-2021GMK067994

PATIENT

DRUGS (2)
  1. TACROLIMUS [Suspect]
     Active Substance: TACROLIMUS
     Indication: Rash
     Dosage: UNK, BID (ONE IN THE MORNING AND ONE AT NIGHT)
     Route: 061
  2. TACROLIMUS [Suspect]
     Active Substance: TACROLIMUS
     Dosage: UNK, OD (ONE IN THE MORNING )
     Route: 061

REACTIONS (4)
  - Night sweats [Recovered/Resolved]
  - Adverse event [Unknown]
  - Hyperhidrosis [Recovered/Resolved]
  - Pruritus [Unknown]
